FAERS Safety Report 5571246-4 (Version None)
Quarter: 2007Q4

REPORT INFORMATION
  Report Type: 
  Country: None (occurrence: None)
  Receive Date: 20071221
  Receipt Date: 20071030
  Transmission Date: 20080405
  Serious: Yes (Other)
  Sender: FDA-Public Use
  Company Number: US-PURDUE-USA_2007_0030237

PATIENT
  Sex: Male
  Weight: 127 kg

DRUGS (1)
  1. OXYCONTIN [Suspect]
     Indication: PAIN
     Dosage: UNK, UNK

REACTIONS (4)
  - DRUG DEPENDENCE [None]
  - EMOTIONAL DISORDER [None]
  - EUPHORIC MOOD [None]
  - SUICIDAL IDEATION [None]
